FAERS Safety Report 19363568 (Version 1)
Quarter: 2021Q2

REPORT INFORMATION
  Report Type: Spontaneous
  Country: FR (occurrence: FR)
  Receive Date: 20210603
  Receipt Date: 20210603
  Transmission Date: 20210717
  Serious: Yes (Other)
  Sender: FDA-Public Use
  Company Number: FR-TEVA-2021-FR-1917280

PATIENT
  Age: 101 Year
  Sex: Female
  Weight: 68.1 kg

DRUGS (8)
  1. DICHLORHYDRATE DE CETIRIZINE [Concomitant]
     Active Substance: CETIRIZINE HYDROCHLORIDE
     Dosage: THERAPY START DATE :ASKU:UNIT DOSE:10MILLIGRAM
     Route: 048
  2. EFFIZINC [Concomitant]
     Active Substance: ZINC GLUCONATE
     Dosage: 30MILLIGRAM
     Route: 048
     Dates: start: 202101
  3. METHOTREXATE. [Suspect]
     Active Substance: METHOTREXATE
     Indication: ECZEMA
     Dosage: 7.5MILLIGRAM
     Route: 058
     Dates: start: 20210416, end: 20210430
  4. LETROZOLE. [Concomitant]
     Active Substance: LETROZOLE
     Dosage: 2.5MILLIGRAM
     Route: 048
     Dates: start: 2018
  5. BETNEVAL 0,1 POUR CENT, CREME [Concomitant]
     Dosage: 4DOSAGEFORM
     Route: 003
     Dates: start: 2020
  6. FUROSEMIDE. [Concomitant]
     Active Substance: FUROSEMIDE
     Dosage: THERAPY START DATE :ASKU:UNIT DOSE:20MILLIGRAM
     Route: 048
  7. QVAR AUTOHALER 100 MICROGRAMMES/DOSE, SOLUTION POUR INHALATION EN FLAC [Concomitant]
     Dosage: 4DOSAGEFORM:THERAPY START DATE:ASKU
     Route: 055
  8. LEVOTHYROXINE SODIQUE [Concomitant]
     Active Substance: LEVOTHYROXINE SODIUM
     Dosage: 100MICROGRAM
     Route: 048
     Dates: start: 2020

REACTIONS (3)
  - Thrombocytopenia [Recovered/Resolved]
  - Haemoglobin decreased [Not Recovered/Not Resolved]
  - Lymphopenia [Recovered/Resolved]

NARRATIVE: CASE EVENT DATE: 20210429
